FAERS Safety Report 9562247 (Version 2)
Quarter: 2013Q4

REPORT INFORMATION
  Report Type: Spontaneous
  Country: US (occurrence: US)
  Receive Date: 20130927
  Receipt Date: 20131021
  Transmission Date: 20140711
  Serious: Yes (Hospitalization, Other)
  Sender: FDA-Public Use
  Company Number: ALCN2013US004785

PATIENT
  Sex: 0

DRUGS (1)
  1. AZOPT [Suspect]
     Dosage: 1 DF, UNK

REACTIONS (2)
  - Hypotension [Unknown]
  - Paraesthesia [Unknown]
